FAERS Safety Report 12614144 (Version 1)
Quarter: 2016Q3

REPORT INFORMATION
  Report Type: Spontaneous
  Country: US (occurrence: None)
  Receive Date: 20160801
  Receipt Date: 20160801
  Transmission Date: 20161109
  Serious: Yes (Other)
  Sender: FDA-Public Use
  Company Number: None

PATIENT
  Age: 28 Year
  Sex: Male
  Weight: 83.46 kg

DRUGS (6)
  1. ZOLOFT [Concomitant]
     Active Substance: SERTRALINE HYDROCHLORIDE
  2. TIZANDINE [Concomitant]
     Active Substance: TIZANIDINE
  3. ABILIFY [Suspect]
     Active Substance: ARIPIPRAZOLE
     Indication: MAJOR DEPRESSION
     Dates: start: 20130513, end: 20160215
  4. NAPROXEN. [Concomitant]
     Active Substance: NAPROXEN
  5. XANAX [Concomitant]
     Active Substance: ALPRAZOLAM
  6. B VITAMIN COMPLEX [Concomitant]

REACTIONS (4)
  - Weight increased [None]
  - Gambling [None]
  - Impulse-control disorder [None]
  - Compulsive shopping [None]

NARRATIVE: CASE EVENT DATE: 20140303
